FAERS Safety Report 13838969 (Version 2)
Quarter: 2017Q3

REPORT INFORMATION
  Report Type: Spontaneous
  Country: US (occurrence: US)
  Receive Date: 20170807
  Receipt Date: 20170906
  Transmission Date: 20171127
  Serious: Yes (Hospitalization, Other)
  Sender: FDA-Public Use
  Company Number: US-AMGEN-USASP2017117243

PATIENT
  Age: 74 Year
  Sex: Male
  Weight: 62 kg

DRUGS (8)
  1. KYPROLIS [Suspect]
     Active Substance: CARFILZOMIB
     Indication: PLASMA CELL MYELOMA
     Dosage: 45 MG, UNK
     Route: 065
     Dates: start: 20160418
  2. KYPROLIS [Suspect]
     Active Substance: CARFILZOMIB
     Dosage: 75 MG, UNK
     Route: 065
     Dates: start: 20170627, end: 2017
  3. DECADRON [Concomitant]
     Active Substance: DEXAMETHASONE
     Indication: PLASMA CELL MYELOMA
     Dosage: 10 MG, (WITH EACH KYPROLIS INFUSION)
     Dates: start: 20160229, end: 2017
  4. DECADRON [Concomitant]
     Active Substance: DEXAMETHASONE
     Dosage: UNK
     Dates: start: 20170821
  5. KYPROLIS [Suspect]
     Active Substance: CARFILZOMIB
     Dosage: UNK
     Route: 065
     Dates: start: 20170821
  6. POMALIDOMIDE [Concomitant]
     Active Substance: POMALIDOMIDE
     Dosage: UNK
     Dates: start: 20170821
  7. DARZALEX [Concomitant]
     Active Substance: DARATUMUMAB
     Dosage: UNK
     Dates: start: 20170821
  8. POMALIDOMIDE [Concomitant]
     Active Substance: POMALIDOMIDE
     Indication: PLASMA CELL MYELOMA
     Dosage: 2 MG, UNK
     Dates: start: 20160101, end: 2017

REACTIONS (1)
  - Cardiomyopathy [Recovering/Resolving]

NARRATIVE: CASE EVENT DATE: 20170629
